FAERS Safety Report 6557547-1 (Version None)
Quarter: 2010Q1

REPORT INFORMATION
  Report Type: 
  Country: None (occurrence: None)
  Receive Date: 20100129
  Receipt Date: 20100123
  Transmission Date: 20100710
  Serious: Yes (Hospitalization)
  Sender: FDA-Public Use
  Company Number: US-ROCHE-681203

PATIENT
  Sex: Female

DRUGS (1)
  1. VALGANCICLOVIR HCL [Suspect]
     Indication: DRUG USE FOR UNKNOWN INDICATION
     Route: 065
     Dates: start: 20091001

REACTIONS (4)
  - ADENOVIRUS INFECTION [None]
  - CYTOMEGALOVIRUS INFECTION [None]
  - IMMUNE SYSTEM DISORDER [None]
  - TRANSPLANT REJECTION [None]
